FAERS Safety Report 10087632 (Version 2)
Quarter: 2014Q4

REPORT INFORMATION
  Report Type: Spontaneous
  Country: US (occurrence: US)
  Receive Date: 20140418
  Receipt Date: 20141021
  Transmission Date: 20150528
  Serious: No
  Sender: FDA-Public Use
  Company Number: US-PURDUE-USA-2013-0109533

PATIENT
  Sex: Female

DRUGS (1)
  1. OXYCONTIN [Suspect]
     Active Substance: OXYCODONE HYDROCHLORIDE
     Indication: PAIN
     Dosage: 160 MG, BID
     Route: 048
     Dates: start: 200312

REACTIONS (4)
  - Migraine [Unknown]
  - Medication error [Unknown]
  - Pharyngitis streptococcal [Unknown]
  - Vomiting [Unknown]
